FAERS Safety Report 6891347-8 (Version None)
Quarter: 2010Q3

REPORT INFORMATION
  Report Type: 
  Country: None (occurrence: None)
  Receive Date: 20100731
  Receipt Date: 20090806
  Transmission Date: 20110219
  Serious: No
  Sender: FDA-Public Use
  Company Number: US-PFIZER INC-2009253634

PATIENT
  Sex: Female

DRUGS (5)
  1. LIPITOR [Suspect]
     Indication: HIGH DENSITY LIPOPROTEIN DECREASED
     Dosage: UNK
     Route: 048
     Dates: start: 19940101
  2. VERAPAMIL [Concomitant]
     Dosage: UNK
  3. FAMOTIDINE [Concomitant]
     Dosage: UNK
  4. CALCIUM [Concomitant]
     Indication: BONE DISORDER
     Dosage: UNK
  5. ACETYLSALICYLIC ACID [Concomitant]
     Dosage: TWO TIMES A WEEK

REACTIONS (3)
  - HYPERTENSION [None]
  - NEUROMYOPATHY [None]
  - PAIN IN EXTREMITY [None]
